FAERS Safety Report 7721187-9 (Version None)
Quarter: 2011Q3

REPORT INFORMATION
  Report Type: 
  Country: None (occurrence: None)
  Receive Date: 20110831
  Receipt Date: 20110822
  Transmission Date: 20111222
  Serious: Yes (Hospitalization)
  Sender: FDA-Public Use
  Company Number: JP-BAYER-200911700BYL

PATIENT
  Age: 26 Year
  Sex: Female
  Weight: 49 kg

DRUGS (12)
  1. ASPIRIN [Concomitant]
     Dosage: 100 MG, QD
     Route: 048
     Dates: start: 20080714, end: 20080728
  2. LEXOTAN [Concomitant]
     Dosage: 5 MG
     Route: 048
     Dates: start: 20080714
  3. TOLEDOMIN [Concomitant]
     Dosage: 75 UNK, UNK
     Route: 048
     Dates: start: 20080714
  4. NITRAZEPAM [Concomitant]
     Dosage: 5 MG, UNK
     Route: 048
     Dates: start: 20080714
  5. MAGMITT [Concomitant]
     Dosage: 990 MG, UNK
     Route: 048
     Dates: start: 20080922
  6. NEXAVAR [Suspect]
     Indication: RENAL CELL CARCINOMA STAGE IV
     Dosage: 400 MG/DAY
     Route: 048
     Dates: start: 20080714, end: 20080918
  7. WARFARIN SODIUM [Concomitant]
     Dosage: 3 MG, UNK
     Route: 048
     Dates: start: 20080729
  8. NEXAVAR [Suspect]
     Dosage: 400 MG/DAY
     Dates: start: 20081013, end: 20090114
  9. PURSENNID [Concomitant]
     Dosage: 4 DF, UNK
     Route: 048
     Dates: start: 20080714
  10. PROMETHAZINE HCL [Concomitant]
     Dosage: 50 MG, UNK
     Route: 048
     Dates: start: 20080714
  11. SILECE [Concomitant]
     Dosage: 2 MG, UNK
     Route: 048
     Dates: start: 20080714
  12. PROMAZINE HYDROCHLORIDE [Concomitant]
     Dosage: 70 MG, UNK
     Route: 048
     Dates: start: 20080714

REACTIONS (7)
  - COAGULATION TIME ABNORMAL [None]
  - C-REACTIVE PROTEIN INCREASED [None]
  - ANAEMIA [None]
  - BLOOD AMYLASE INCREASED [None]
  - LYMPHOCYTE COUNT DECREASED [None]
  - PYREXIA [None]
  - LIPASE INCREASED [None]
